FAERS Safety Report 9528468 (Version 1)
Quarter: 2013Q3

REPORT INFORMATION
  Report Type: Spontaneous
  Country: IN (occurrence: None)
  Receive Date: 20130913
  Receipt Date: 20130913
  Transmission Date: 20140515
  Serious: Yes (Other)
  Sender: FDA-Public Use
  Company Number: FK201304195

PATIENT
  Age: 50 Year
  Sex: Male

DRUGS (1)
  1. METHOTREXATE (MANUFACTURER UNKNOWN) (METHOTREXATE) (METHOTREXATE) [Suspect]
     Indication: PSORIASIS

REACTIONS (7)
  - Medication error [None]
  - Psoriasis [None]
  - Mucosal inflammation [None]
  - Headache [None]
  - Vision blurred [None]
  - Diarrhoea [None]
  - Blood alkaline phosphatase increased [None]
